FAERS Safety Report 21408582 (Version 1)
Quarter: 2022Q4

REPORT INFORMATION
  Report Type: Spontaneous
  Country: FR (occurrence: FR)
  Receive Date: 20221004
  Receipt Date: 20221004
  Transmission Date: 20230113
  Serious: Yes (Congenital Anomaly, Other)
  Sender: FDA-Public Use
  Company Number: FR-ABBVIE-21K-056-4195458-00

PATIENT
  Sex: Female

DRUGS (2)
  1. VALPROATE SODIUM [Suspect]
     Active Substance: VALPROATE SODIUM
     Indication: Product used for unknown indication
     Route: 064
  2. ALIMEMAZINE (ALIMEMAZINE) [Concomitant]
     Indication: Product used for unknown indication

REACTIONS (41)
  - Congenital foot malformation [Unknown]
  - Gait disturbance [Unknown]
  - Congenital foot malformation [Unknown]
  - Loose associations [Unknown]
  - Dysmorphism [Unknown]
  - Antisocial behaviour [Unknown]
  - Microcephaly [Unknown]
  - Dysmorphism [Unknown]
  - Hypertonia [Unknown]
  - Communication disorder [Unknown]
  - Psychomotor retardation [Unknown]
  - Misophonia [Unknown]
  - Congenital oral malformation [Unknown]
  - Anger [Unknown]
  - Behaviour disorder [Unknown]
  - Poor personal hygiene [Unknown]
  - Visual impairment [Unknown]
  - Histrionic personality disorder [Unknown]
  - Feeding disorder [Unknown]
  - Anxiety [Unknown]
  - Sleep disorder [Unknown]
  - Coordination abnormal [Unknown]
  - Poor personal hygiene [Unknown]
  - Frustration tolerance decreased [Unknown]
  - Gastrooesophageal reflux disease [Unknown]
  - Tongue disorder [Unknown]
  - Foetal exposure during pregnancy [Unknown]
  - Speech disorder developmental [Unknown]
  - Gastrooesophageal reflux disease [Unknown]
  - Psychomotor retardation [Unknown]
  - Psychomotor hyperactivity [Unknown]
  - Language disorder [Unknown]
  - Aggression [Unknown]
  - Hypertension [Unknown]
  - Motor developmental delay [Unknown]
  - Hypertonia [Unknown]
  - Visual impairment [Unknown]
  - Microcephaly [Unknown]
  - Feeding disorder [Unknown]
  - Middle insomnia [Unknown]
  - Balance disorder [Unknown]
